FAERS Safety Report 18640602 (Version 1)
Quarter: 2020Q4

REPORT INFORMATION
  Report Type: Other
  Country: JP (occurrence: JP)
  Receive Date: 20201221
  Receipt Date: 20201221
  Transmission Date: 20210114
  Serious: Yes (Hospitalization)
  Sender: FDA-Public Use
  Company Number: JP-ROCHE-2734969

PATIENT
  Age: 56 Year
  Sex: Female

DRUGS (1)
  1. RITUXAN [Suspect]
     Active Substance: RITUXIMAB
     Indication: PROPHYLAXIS AGAINST TRANSPLANT REJECTION
     Dosage: SINGLE DOSE
     Route: 041

REACTIONS (6)
  - Bronchopulmonary aspergillosis [Unknown]
  - Cytomegalovirus test positive [Unknown]
  - Bacteriuria [Unknown]
  - Intentional product use issue [Unknown]
  - Urinary tract infection [Unknown]
  - Off label use [Unknown]
